FAERS Safety Report 24053894 (Version 2)
Quarter: 2024Q3

REPORT INFORMATION
  Report Type: Spontaneous
  Country: US (occurrence: US)
  Receive Date: 20240705
  Receipt Date: 20240711
  Transmission Date: 20241016
  Serious: No
  Sender: SANOFI AVENTIS
  Company Number: US-SA-SAC20240702000418

PATIENT
  Age: 7 Year
  Sex: Male
  Weight: 21.7 kg

DRUGS (3)
  1. DUPIXENT [Suspect]
     Active Substance: DUPILUMAB
     Indication: Dermatitis
     Dosage: DOSE AND ROUTE PRESCRIBED : 300 MG FREQUENCY: EVERY 28 DAYS
     Route: 058
  2. DUPIXENT [Suspect]
     Active Substance: DUPILUMAB
     Indication: Asthma
  3. DUPIXENT [Suspect]
     Active Substance: DUPILUMAB
     Indication: Eczema

REACTIONS (2)
  - Product use in unapproved indication [Unknown]
  - Product storage error [Unknown]

NARRATIVE: CASE EVENT DATE: 20240601
